FAERS Safety Report 24321557 (Version 1)
Quarter: 2024Q3

REPORT INFORMATION
  Report Type: Spontaneous
  Country: FI (occurrence: FI)
  Receive Date: 20240916
  Receipt Date: 20240916
  Transmission Date: 20241017
  Serious: Yes (Hospitalization)
  Sender: CHEPLAPHARM
  Company Number: None

PATIENT
  Age: 63 Year
  Sex: Male

DRUGS (8)
  1. OLANZAPINE PAMOATE [Suspect]
     Active Substance: OLANZAPINE PAMOATE
     Indication: Bipolar disorder
     Route: 030
     Dates: start: 20221221, end: 20240731
  2. LEVOTHYROXINE [Concomitant]
     Active Substance: LEVOTHYROXINE\LEVOTHYROXINE SODIUM
     Indication: Hypothyroidism
     Dosage: 2X1?DAILY DOSE: 50 MICROGRAM
     Route: 048
     Dates: start: 20201005
  3. BISOPROLOL [Concomitant]
     Active Substance: BISOPROLOL\BISOPROLOL FUMARATE
     Indication: Hypertension
     Dosage: 1X1?DAILY DOSE: 5 MILLIGRAM
     Route: 048
     Dates: start: 20200728
  4. CANDESARTAN CILEXETIL [Concomitant]
     Active Substance: CANDESARTAN CILEXETIL
     Indication: Hypertension
     Dosage: 1X1?DAILY DOSE: 16 MILLIGRAM
     Dates: start: 20200728
  5. FINASTERIDE [Concomitant]
     Active Substance: FINASTERIDE
     Indication: Benign prostatic hyperplasia
     Dosage: 1X1?DAILY DOSE: 5 MILLIGRAM
     Route: 048
     Dates: start: 20191231
  6. VALDOXAN [Concomitant]
     Active Substance: AGOMELATINE
     Indication: Depressive symptom
     Dosage: 0+0+2
     Route: 048
     Dates: start: 20201029
  7. PREGABALIN [Concomitant]
     Active Substance: PREGABALIN
     Indication: Anxiety
     Dosage: 1+0+2
     Route: 048
     Dates: start: 20200810
  8. TAMICTOR [Concomitant]
     Indication: Benign prostatic hyperplasia
     Dosage: 1X1?DAILY DOSE: 0.4 MILLIGRAM
     Route: 048
     Dates: start: 20191210

REACTIONS (5)
  - Pneumonia [Recovering/Resolving]
  - Loss of consciousness [Recovering/Resolving]
  - Fear of injection [Recovering/Resolving]
  - Anxiety [Recovering/Resolving]
  - Oxygen saturation decreased [Recovering/Resolving]

NARRATIVE: CASE EVENT DATE: 20240731
